FAERS Safety Report 6406625-6 (Version None)
Quarter: 2009Q4

REPORT INFORMATION
  Report Type: 
  Country: None (occurrence: None)
  Receive Date: 20091014
  Receipt Date: 20090930
  Transmission Date: 20100525
  Serious: Yes (Death)
  Sender: FDA-Public Use
  Company Number: 2009AL006478

PATIENT
  Sex: Male

DRUGS (6)
  1. ACYCLOVIR [Suspect]
     Indication: HERPES ZOSTER
     Dosage: 800 MG; TID; IV
     Route: 042
     Dates: start: 20090824, end: 20090825
  2. VELCADE [Concomitant]
  3. OMEPRAZOLE [Concomitant]
  4. RAMIPRIL [Concomitant]
  5. ATENOLOL [Concomitant]
  6. DOXAZOSIN MESYLATE [Concomitant]

REACTIONS (5)
  - ANURIA [None]
  - CONFUSIONAL STATE [None]
  - HYPOTENSION [None]
  - PULMONARY OEDEMA [None]
  - RENAL FAILURE ACUTE [None]
